FAERS Safety Report 5074704-4 (Version None)
Quarter: 2006Q3

REPORT INFORMATION
  Report Type: 
  Country: None (occurrence: None)
  Receive Date: 20060803
  Receipt Date: 20060717
  Transmission Date: 20061208
  Serious: Yes (Death)
  Sender: FDA-Public Use
  Company Number: US200607002146

PATIENT
  Age: 46 Year
  Sex: Male

DRUGS (12)
  1. CYMBALTA [Suspect]
  2. INSULIN [Concomitant]
  3. PANCREASE (PANCRELIPASE) [Concomitant]
  4. LISINOPRIL [Suspect]
  5. REGLAN /USA/ (METOCLOPRAMIDE HYDROCHLORIDE4) [Concomitant]
  6. HYDROCODONE (HYDROCODONE) [Concomitant]
  7. OXYCONTIN [Concomitant]
  8. COREG [Concomitant]
  9. SINGULAIR [Concomitant]
  10. ZANAFLEX [Concomitant]
  11. STRATTERA [Concomitant]
  12. LIBRIUM [Concomitant]

REACTIONS (1)
  - SUDDEN DEATH [None]
